FAERS Safety Report 7380981-7 (Version None)
Quarter: 2011Q1

REPORT INFORMATION
  Report Type: 
  Country: None (occurrence: None)
  Receive Date: 20110329
  Receipt Date: 20110321
  Transmission Date: 20110831
  Serious: Yes (Hospitalization, Other)
  Sender: FDA-Public Use
  Company Number: US-AMGEN-USASP2011009305

PATIENT
  Sex: Female

DRUGS (2)
  1. SENSIPAR [Suspect]
     Dosage: 60 MG, QD
  2. SENSIPAR [Suspect]
     Indication: PRODUCT USED FOR UNKNOWN INDICATION
     Dosage: 30 MG, QD

REACTIONS (3)
  - HYPOCALCAEMIA [None]
  - BLOOD PARATHYROID HORMONE DECREASED [None]
  - HOSPITALISATION [None]
